FAERS Safety Report 12180415 (Version 1)
Quarter: 2016Q1

REPORT INFORMATION
  Report Type: Spontaneous
  Country: GB (occurrence: GB)
  Receive Date: 20160315
  Receipt Date: 20160315
  Transmission Date: 20160526
  Serious: Yes (Other)
  Sender: FDA-Public Use
  Company Number: GB-DEXPHARM-20160231

PATIENT
  Age: 31 Year
  Sex: Female
  Weight: 56.24 kg

DRUGS (4)
  1. CETIRIZINE [Suspect]
     Active Substance: CETIRIZINE HYDROCHLORIDE
     Indication: RHINITIS ALLERGIC
     Route: 048
     Dates: start: 20160125, end: 20160211
  2. PENTASA [Concomitant]
     Active Substance: MESALAMINE
  3. OMEPRAZOLE. [Suspect]
     Active Substance: OMEPRAZOLE
  4. BECLOMETHAZONE DIPROPIONATE [Concomitant]

REACTIONS (1)
  - Panic attack [Recovered/Resolved]

NARRATIVE: CASE EVENT DATE: 20160127
